FAERS Safety Report 6986216-9 (Version None)
Quarter: 2010Q3

REPORT INFORMATION
  Report Type: 
  Country: None (occurrence: None)
  Receive Date: 20100915
  Receipt Date: 20090608
  Transmission Date: 20110219
  Serious: No
  Sender: FDA-Public Use
  Company Number: US-WYE-H09666809

PATIENT
  Sex: Female

DRUGS (8)
  1. PRISTIQ [Suspect]
     Indication: DEPRESSION
     Route: 048
     Dates: start: 20090501
  2. METHOTREXATE [Concomitant]
  3. TREXIMET [Interacting]
     Dosage: UNKNOWN
     Route: 048
     Dates: start: 20090605, end: 20090606
  4. PRILOSEC [Concomitant]
  5. LEVOTHYROXINE [Concomitant]
  6. FEMARA [Concomitant]
  7. RELAFEN [Concomitant]
  8. GABAPENTIN [Concomitant]

REACTIONS (4)
  - COLD SWEAT [None]
  - DIZZINESS [None]
  - DRUG INTERACTION [None]
  - NAUSEA [None]
